FAERS Safety Report 8152932-9 (Version None)
Quarter: 2012Q1

REPORT INFORMATION
  Report Type: 
  Country: None (occurrence: None)
  Receive Date: 20120216
  Receipt Date: 20120216
  Transmission Date: 20120608
  Serious: Yes (Other)
  Sender: FDA-Public Use
  Company Number: None

PATIENT
  Age: 72 Year
  Sex: Female
  Weight: 50.3 kg

DRUGS (6)
  1. FOLIC ACID [Concomitant]
  2. METHOTREXATE [Concomitant]
  3. CALTRATE 600+D (CALCIUM CARBONATE) [Concomitant]
  4. CENTRUM SILVER ULTRA WOMEN'S (MULTIMINERALS MULTIVITAMINS) TABLETS [Suspect]
     Indication: VITAMIN SUPPLEMENTATION
     Dosage: 1X/DAY ORAL
     Route: 048
     Dates: start: 20110101
  5. CELEBREX [Suspect]
     Indication: ARTHRITIS
     Dates: start: 20010101, end: 20010101
  6. SULFASALAZINE [Concomitant]

REACTIONS (2)
  - RETCHING [None]
  - CHOKING [None]
